FAERS Safety Report 23642456 (Version 1)
Quarter: 2024Q1

REPORT INFORMATION
  Report Type: Spontaneous
  Country: US (occurrence: US)
  Receive Date: 20240318
  Receipt Date: 20240318
  Transmission Date: 20240410
  Serious: No
  Sender: FDA-Public Use
  Company Number: US-BAYER-2024A027748

PATIENT
  Age: 5 Year

DRUGS (1)
  1. CLARITIN [Suspect]
     Active Substance: LORATADINE
     Dosage: 1 CHEWABLE CAPLET AT MORNING AND ONE IN THE EVENING
     Route: 048

REACTIONS (1)
  - Inappropriate schedule of product administration [Unknown]
